FAERS Safety Report 10955643 (Version 1)
Quarter: 2015Q1

REPORT INFORMATION
  Report Type: Report from Study
  Country: US (occurrence: US)
  Receive Date: 20150326
  Receipt Date: 20150326
  Transmission Date: 20150721
  Serious: Yes (Other)
  Sender: FDA-Public Use
  Company Number: US-JNJFOC-20150315671

PATIENT
  Age: 17 Year
  Sex: Male
  Weight: 72.6 kg

DRUGS (6)
  1. REMICADE [Suspect]
     Active Substance: INFLIXIMAB
     Indication: CROHN^S DISEASE
     Route: 042
     Dates: start: 20150209
  2. REMICADE [Suspect]
     Active Substance: INFLIXIMAB
     Indication: CROHN^S DISEASE
     Route: 042
  3. VITAMIN D3 [Concomitant]
     Active Substance: CHOLECALCIFEROL
     Dosage: 25 OH
     Route: 065
  4. REMICADE [Suspect]
     Active Substance: INFLIXIMAB
     Indication: CROHN^S DISEASE
     Dosage: 7TH INFUSION
     Route: 042
     Dates: start: 20141216
  5. REMICADE [Suspect]
     Active Substance: INFLIXIMAB
     Indication: CROHN^S DISEASE
     Dosage: 6TH INFUSION
     Route: 042
     Dates: start: 20141020
  6. REMICADE [Suspect]
     Active Substance: INFLIXIMAB
     Indication: CROHN^S DISEASE
     Dosage: 5TH INFUSION
     Route: 042
     Dates: start: 20140825

REACTIONS (9)
  - Arthritis [Unknown]
  - Abdominal wall abscess [Unknown]
  - Ileostomy closure [Unknown]
  - Feeding disorder [Unknown]
  - Depression [Unknown]
  - Crohn^s disease [Unknown]
  - Enterocutaneous fistula [Not Recovered/Not Resolved]
  - Colectomy [Unknown]
  - Adverse event [Unknown]

NARRATIVE: CASE EVENT DATE: 20140305
